FAERS Safety Report 7435005-X (Version None)
Quarter: 2011Q2

REPORT INFORMATION
  Report Type: 
  Country: None (occurrence: None)
  Receive Date: 20110425
  Receipt Date: 20110414
  Transmission Date: 20111010
  Serious: Yes (Hospitalization, Other)
  Sender: FDA-Public Use
  Company Number: BR-ASTRAZENECA-2011SE22001

PATIENT
  Age: 950 Month
  Sex: Female
  Weight: 72 kg

DRUGS (8)
  1. SOMALGIN CARDIO [Concomitant]
     Indication: CARDIAC DISORDER
     Route: 048
     Dates: start: 20091201
  2. MONOCORDIL [Concomitant]
     Indication: CARDIAC DISORDER
     Route: 048
     Dates: start: 20091201
  3. UNKNOWN MEDICATION FOR DYSLIPIDEMIA [Concomitant]
  4. LEVOID [Concomitant]
     Indication: THYROID HORMONE REPLACEMENT THERAPY
     Route: 048
  5. ATACAND HCT [Suspect]
     Indication: HYPERTENSION
     Dosage: 16/12.5 MG DAILY
     Route: 048
  6. NEXIUM [Suspect]
     Indication: PROPHYLAXIS AGAINST GASTROINTESTINAL ULCER
     Route: 048
     Dates: start: 20110101
  7. CRESTOR [Suspect]
     Indication: DYSLIPIDAEMIA
     Route: 048
  8. UNKNOWN MEDICATION FOR HYPERTENSION [Concomitant]

REACTIONS (6)
  - FALL [None]
  - ANAEMIA [None]
  - DRUG PRESCRIBING ERROR [None]
  - SKULL FRACTURE [None]
  - DRUG DOSE OMISSION [None]
  - CAROTID ARTERY OCCLUSION [None]
